FAERS Safety Report 10888675 (Version 1)
Quarter: 2015Q1

REPORT INFORMATION
  Report Type: Report from Study
  Country: BE (occurrence: BE)
  Receive Date: 20150305
  Receipt Date: 20150305
  Transmission Date: 20150721
  Serious: Yes (Hospitalization)
  Sender: FDA-Public Use
  Company Number: BE-ABBVIE-14P-013-1300327-00

PATIENT

DRUGS (4)
  1. DUODOPA [Suspect]
     Active Substance: CARBIDOPA\LEVODOPA
     Indication: PARKINSON^S DISEASE
     Dosage: AM DOSE= 9ML, CONTIN DOSE= 4.6ML/H DURING 16HRS, EXTRA DOSE=2.5ML
     Route: 050
     Dates: start: 20140210, end: 20140214
  2. DUODOPA [Suspect]
     Active Substance: CARBIDOPA\LEVODOPA
     Dosage: AM DOSE= 3ML, CONTIN DOSE= 4.6ML/HX16HRS, NIGHT DOSE=3.6ML/HX 8HRS, EXTRA DOSE= 2.5ML
     Route: 050
     Dates: start: 20140813
  3. DUODOPA [Suspect]
     Active Substance: CARBIDOPA\LEVODOPA
     Dosage: DOSAGE CONTINUOUSLY MONITORED AND ADJUSTED
     Route: 050
     Dates: start: 20140214, end: 20140813
  4. PROLOPA [Concomitant]
     Active Substance: BENSERAZIDE\LEVODOPA
     Indication: PARKINSON^S DISEASE
     Dosage: THREE TO FOUR TIMES A DAY
     Route: 065

REACTIONS (2)
  - Weight decreased [Unknown]
  - Depression [Unknown]
